FAERS Safety Report 17097182 (Version 3)
Quarter: 2019Q4

REPORT INFORMATION
  Report Type: Report from Study
  Country: US (occurrence: US)
  Receive Date: 20191202
  Receipt Date: 20191218
  Transmission Date: 20200122
  Serious: Yes (Death, Hospitalization, Other)
  Sender: FDA-Public Use
  Company Number: US-B.I. PHARMACEUTICALS,INC./RIDGEFIELD-2019-BI-032618

PATIENT
  Age: 85 Year
  Sex: Male

DRUGS (3)
  1. OFEV [Suspect]
     Active Substance: NINTEDANIB
     Indication: IDIOPATHIC PULMONARY FIBROSIS
     Dosage: 150MG ORALLY TWICE DAILY
     Route: 048
     Dates: start: 20190617, end: 20190827
  2. OFEV [Suspect]
     Active Substance: NINTEDANIB
     Route: 048
  3. OFEV [Suspect]
     Active Substance: NINTEDANIB
     Route: 048

REACTIONS (15)
  - Constipation [Not Recovered/Not Resolved]
  - Lung disorder [Unknown]
  - Decreased appetite [Unknown]
  - Amnesia [Unknown]
  - Subdural haematoma [Unknown]
  - Dyspnoea [Unknown]
  - Death [Fatal]
  - Dyspnoea [Unknown]
  - Asthenia [Unknown]
  - Extra dose administered [Unknown]
  - Respiratory distress [Unknown]
  - Diarrhoea [Recovering/Resolving]
  - Idiopathic pulmonary fibrosis [Unknown]
  - Rash [Unknown]
  - Hypophagia [Unknown]

NARRATIVE: CASE EVENT DATE: 20191122
